FAERS Safety Report 21979161 (Version 2)
Quarter: 2023Q1

REPORT INFORMATION
  Report Type: Report from Study
  Country: FR (occurrence: None)
  Receive Date: 20230210
  Receipt Date: 20230217
  Transmission Date: 20230417
  Serious: Yes (Hospitalization)
  Sender: FDA-Public Use
  Company Number: FR-ROCHE-3280427

PATIENT
  Age: 63 Year
  Sex: Female
  Weight: 49.5 kg

DRUGS (4)
  1. ATEZOLIZUMAB [Suspect]
     Active Substance: ATEZOLIZUMAB
     Indication: Metastatic neoplasm
     Dosage: DATE OF LAST ADMINISTRATION BEFORE EVENT 17/JAN/2023 (1200 MG), CUMULATIVE DOSE SINCE THE 1 ST ADMIN
     Route: 041
     Dates: start: 20221227
  2. TIRAGOLUMAB [Suspect]
     Active Substance: TIRAGOLUMAB
     Indication: Metastatic neoplasm
     Dosage: DATE OF LAST ADMINISTRATION BEFORE EVENT 17/JAN/2023 (600 MG), CUMULATIVE DOSE SINCE THE 1 ST ADMINI
     Route: 042
     Dates: start: 20221227
  3. OXAZEPAM [Concomitant]
     Active Substance: OXAZEPAM
     Indication: Anxiety
     Route: 048
  4. ACETAMINOPHEN [Concomitant]
     Active Substance: ACETAMINOPHEN
     Indication: Pain
     Route: 048

REACTIONS (2)
  - Mitral valve incompetence [Not Recovered/Not Resolved]
  - Dyspnoea [Not Recovered/Not Resolved]

NARRATIVE: CASE EVENT DATE: 20230124
